FAERS Safety Report 22356299 (Version 2)
Quarter: 2023Q2

REPORT INFORMATION
  Report Type: Spontaneous
  Country: RU (occurrence: None)
  Receive Date: 20230523
  Receipt Date: 20230531
  Transmission Date: 20230722
  Serious: Yes (Life-Threatening, Hospitalization, Other)
  Sender: FDA-Public Use
  Company Number: 2023A118656

PATIENT
  Age: 76 Year
  Sex: Female
  Weight: 56 kg

DRUGS (4)
  1. CRESTOR [Suspect]
     Active Substance: ROSUVASTATIN CALCIUM
     Indication: Primary hypercholesterolaemia
     Route: 048
     Dates: end: 20210924
  2. INDAPAMIDE [Concomitant]
     Active Substance: INDAPAMIDE
  3. NEBIVOLOL [Concomitant]
     Active Substance: NEBIVOLOL
  4. LERCANIDIPINE HYDROCHLORIDE [Concomitant]
     Active Substance: LERCANIDIPINE HYDROCHLORIDE
     Dosage: 15 MG IN THE EVENING

REACTIONS (1)
  - Rhabdomyolysis [Recovered/Resolved]

NARRATIVE: CASE EVENT DATE: 20210924
